FAERS Safety Report 4528877-X (Version None)
Quarter: 2004Q4

REPORT INFORMATION
  Report Type: 
  Country: None (occurrence: None)
  Receive Date: 20041214
  Receipt Date: 20041201
  Transmission Date: 20050328
  Serious: Yes (Life-Threatening, Hospitalization)
  Sender: FDA-Public Use
  Company Number: USA-2004-0017665

PATIENT
  Age: 62 Year
  Sex: Female

DRUGS (7)
  1. CEFDITOREN PIVOXIL (SIMILAR TO NDA 21-222) (CEFDITOREN PIVOXIL) OTHER [Suspect]
     Indication: UPPER RESPIRATORY TRACT INFLAMMATION
     Dosage: 100 MG, DAILY, ORAL
     Route: 048
     Dates: start: 20041109, end: 20041109
  2. ISOPAL-P (PRONASE, ISOPRENALINE) [Suspect]
  3. DIAZEPAM [Concomitant]
  4. ALFACALCIDOL (ALFACALCIDOL) [Concomitant]
  5. GILBENCLAMIDE (GLIBENCLAMIDE) [Concomitant]
  6. TANATRIL (IMIDAPRIL HYDROCHLORIDE) [Concomitant]
  7. NICORANDIL (NICORANDIL) [Concomitant]

REACTIONS (3)
  - ANAPHYLACTIC SHOCK [None]
  - CHEST PAIN [None]
  - DISORIENTATION [None]
